FAERS Safety Report 24052859 (Version 6)
Quarter: 2024Q4

REPORT INFORMATION
  Report Type: Spontaneous
  Country: CA (occurrence: CA)
  Receive Date: 20240705
  Receipt Date: 20241016
  Transmission Date: 20250115
  Serious: Yes (Hospitalization, Other)
  Sender: CELLTRION
  Company Number: CA-PFIZER INC-202400203072

PATIENT

DRUGS (7)
  1. INFLECTRA [Suspect]
     Active Substance: INFLIXIMAB-DYYB
     Indication: Crohn^s disease
     Dosage: 800 MG (10MG/KG), EVERY 6 WEEKS
     Route: 042
     Dates: start: 20231003
  2. INFLECTRA [Suspect]
     Active Substance: INFLIXIMAB-DYYB
     Dosage: 800 MG (10MG/KG), EVERY 6 WEEKS
     Route: 042
     Dates: start: 20240521, end: 20240521
  3. VITAMIN B12 [Concomitant]
     Active Substance: CYANOCOBALAMIN
     Dosage: UNK
  4. CALCIUM [Concomitant]
     Active Substance: CALCIUM
     Dosage: 2 DF (2 PILLS)
  5. IMURAN [Concomitant]
     Active Substance: AZATHIOPRINE
     Dosage: 200 MG
     Dates: start: 20080101
  6. TINZAPARIN [Concomitant]
     Active Substance: TINZAPARIN
     Dosage: FOR 3 MONTHS
     Route: 058
  7. VITAMIN D3 [Concomitant]
     Active Substance: CHOLECALCIFEROL
     Dosage: UNK

REACTIONS (6)
  - Gastrointestinal perforation [Unknown]
  - Venous thrombosis [Unknown]
  - Malnutrition [Unknown]
  - Duodenal obstruction [Unknown]
  - Upper gastrointestinal haemorrhage [Unknown]
  - Oesophagitis [Unknown]

NARRATIVE: CASE EVENT DATE: 20240101
